FAERS Safety Report 6992163-9 (Version None)
Quarter: 2010Q3

REPORT INFORMATION
  Report Type: 
  Country: None (occurrence: None)
  Receive Date: 20100917
  Receipt Date: 20100906
  Transmission Date: 20110219
  Serious: Yes (Hospitalization, Other)
  Sender: FDA-Public Use
  Company Number: ES-SANOFI-AVENTIS-2010SA050442

PATIENT
  Age: 75 Year
  Sex: Female

DRUGS (4)
  1. DOXYCYCLINE [Suspect]
     Indication: MYCOBACTERIUM FORTUITUM INFECTION
     Route: 048
     Dates: start: 20080101
  2. AMIKACIN [Suspect]
     Indication: MYCOBACTERIUM FORTUITUM INFECTION
     Route: 030
     Dates: start: 20080401
  3. RIFAMPICIN [Suspect]
     Indication: MYCOBACTERIUM FORTUITUM INFECTION
     Route: 048
     Dates: start: 20080401
  4. LEVOFLOXACIN [Concomitant]
     Indication: MYCOBACTERIUM FORTUITUM INFECTION
     Route: 048
     Dates: start: 20080401

REACTIONS (5)
  - ABDOMINAL DISCOMFORT [None]
  - ABDOMINAL PAIN [None]
  - FEELING HOT [None]
  - PANCREATITIS ACUTE [None]
  - THROMBOCYTOPENIA [None]
